FAERS Safety Report 19564548 (Version 1)
Quarter: 2021Q3

REPORT INFORMATION
  Report Type: Spontaneous
  Country: FR (occurrence: FR)
  Receive Date: 20210716
  Receipt Date: 20210716
  Transmission Date: 20211014
  Serious: Yes (Hospitalization, Other)
  Sender: FDA-Public Use
  Company Number: FR-BRISTOL-MYERS SQUIBB COMPANY-BMS-2021-065801

PATIENT
  Age: 63 Year
  Sex: Male
  Weight: 74 kg

DRUGS (7)
  1. METHOTREXATE MYLAN [Suspect]
     Active Substance: METHOTREXATE SODIUM
     Indication: LYMPHOMA
     Dosage: 4700 MILLIGRAM, QCYCLE
     Route: 042
     Dates: start: 20210402
  2. AMLODIPINE [Suspect]
     Active Substance: AMLODIPINE BESYLATE
     Indication: HYPERTENSION
     Dosage: 10 MILLIGRAM, QD
     Route: 048
     Dates: start: 202103
  3. TAMSULOSINE [TAMSULOSIN] [Suspect]
     Active Substance: TAMSULOSIN
     Indication: PRODUCT USED FOR UNKNOWN INDICATION
     Dosage: UNK UNK, QD
     Route: 048
     Dates: start: 202103
  4. ENTECAVIR. [Suspect]
     Active Substance: ENTECAVIR
     Indication: HEPATITIS C ANTIBODY
     Dosage: 0.5 MILLIGRAM, QD
     Route: 048
     Dates: start: 20210402
  5. OXAZEPAM. [Suspect]
     Active Substance: OXAZEPAM
     Indication: PRODUCT USED FOR UNKNOWN INDICATION
     Dosage: 10 MILLIGRAM, QD
     Route: 048
     Dates: start: 202103
  6. ENDOXAN [CYCLOPHOSPHAMIDE] [Suspect]
     Active Substance: CYCLOPHOSPHAMIDE
     Indication: LYMPHOMA
     Dosage: 1500 MILLIGRAM, QCYCLE
     Route: 042
     Dates: start: 20210326
  7. RIXATHON [Suspect]
     Active Substance: RITUXIMAB
     Indication: LYMPHOMA
     Dosage: 750 MILLIGRAM, QCYCLE
     Route: 042
     Dates: start: 20210401

REACTIONS (2)
  - Interstitial lung disease [Not Recovered/Not Resolved]
  - Intentional product use issue [Unknown]

NARRATIVE: CASE EVENT DATE: 20210607
